FAERS Safety Report 7674204-9 (Version None)
Quarter: 2011Q3

REPORT INFORMATION
  Report Type: 
  Country: None (occurrence: None)
  Receive Date: 20110810
  Receipt Date: 20110801
  Transmission Date: 20111222
  Serious: Yes (Death, Other)
  Sender: FDA-Public Use
  Company Number: US-AMGEN-USASP2011038992

PATIENT
  Age: 66 Year
  Sex: Female

DRUGS (2)
  1. NPLATE [Suspect]
     Indication: LARGE GRANULAR LYMPHOCYTOSIS
  2. NPLATE [Suspect]
     Indication: THROMBOCYTOPENIA
     Dosage: 66 A?G, UNK
     Dates: start: 20100802, end: 20110308

REACTIONS (2)
  - DISEASE PROGRESSION [None]
  - PNEUMONIA [None]
